FAERS Safety Report 5050475-2 (Version None)
Quarter: 2006Q3

REPORT INFORMATION
  Report Type: 
  Country: None (occurrence: None)
  Receive Date: 20060707
  Receipt Date: 20060627
  Transmission Date: 20061208
  Serious: Yes (Hospitalization)
  Sender: FDA-Public Use
  Company Number: TCI2006A01992

PATIENT
  Age: 75 Year
  Sex: Male

DRUGS (5)
  1. ACTOS [Suspect]
     Indication: DIABETES MELLITUS NON-INSULIN-DEPENDENT
     Dosage: 15 MG (15 MG, 1 IN 1 D) PER ORAL
     Route: 048
     Dates: start: 20051012, end: 20060225
  2. BUFFERIN (ACETYLSALICYLIC ACID, ALUMINIUM GLYCINATE) [Concomitant]
  3. EBRANTIL (URAPIDIL) [Concomitant]
  4. HERBRESSOR R (DILTIAZEM HYDROCHLORIDE) [Concomitant]
  5. WARFARIN SODIUM [Concomitant]

REACTIONS (3)
  - CARDIAC FAILURE CONGESTIVE [None]
  - FLUID RETENTION [None]
  - PERIPHERAL ARTERIAL OCCLUSIVE DISEASE [None]
